FAERS Safety Report 6181148-0 (Version None)
Quarter: 2009Q2

REPORT INFORMATION
  Report Type: 
  Country: None (occurrence: None)
  Receive Date: 20090506
  Receipt Date: 20090429
  Transmission Date: 20091009
  Serious: Yes (Hospitalization)
  Sender: FDA-Public Use
  Company Number: ES-BAXTER-2009BH007812

PATIENT
  Age: 44 Year
  Sex: Female

DRUGS (2)
  1. CYCLOPHOSPHAMIDE [Suspect]
     Indication: BREAST CANCER
     Route: 042
     Dates: start: 20090130, end: 20090401
  2. ADRIAMYCIN RDF [Suspect]
     Indication: BREAST CANCER
     Route: 042
     Dates: start: 20090130, end: 20090401

REACTIONS (2)
  - DYSPNOEA [None]
  - PYREXIA [None]
